FAERS Safety Report 16105996 (Version 6)
Quarter: 2020Q4

REPORT INFORMATION
  Report Type: Report from Study
  Country: None (occurrence: JP)
  Receive Date: 20190322
  Receipt Date: 20201028
  Transmission Date: 20210113
  Serious: No
  Sender: FDA-Public Use
  Company Number: JP-ABBVIE-19P-087-2714996-00

PATIENT
  Age: 54 Year
  Sex: Male
  Weight: 68 kg

DRUGS (1)
  1. LEUPLIN [Suspect]
     Active Substance: LEUPROLIDE ACETATE
     Indication: BULBOSPINAL MUSCULAR ATROPHY CONGENITAL
     Route: 058
     Dates: start: 20180404

REACTIONS (3)
  - Bone density decreased [Unknown]
  - Male sexual dysfunction [Not Recovered/Not Resolved]
  - Lipid metabolism disorder [Recovered/Resolved]

NARRATIVE: CASE EVENT DATE: 20180530
